FAERS Safety Report 10170856 (Version 4)
Quarter: 2018Q3

REPORT INFORMATION
  Report Type: Report from Study
  Country: US (occurrence: US)
  Receive Date: 20140514
  Receipt Date: 20180828
  Transmission Date: 20181010
  Serious: Yes (Other)
  Sender: FDA-Public Use
  Company Number: US-ROCHE-1400775

PATIENT
  Sex: Male
  Weight: 45.2 kg

DRUGS (6)
  1. NUTROPIN AQ [Suspect]
     Active Substance: SOMATROPIN
     Indication: GROWTH RETARDATION
     Route: 058
  2. NUTROPIN AQ [Suspect]
     Active Substance: SOMATROPIN
     Route: 058
  3. SAIZEN [Concomitant]
     Active Substance: SOMATROPIN
     Dosage: DILUTE WITH 1 ML OF SALINE
     Route: 058
  4. SAIZEN [Concomitant]
     Active Substance: SOMATROPIN
     Route: 065
  5. NUTROPIN AQ [Suspect]
     Active Substance: SOMATROPIN
     Dosage: ONGOING: UNKNO
     Route: 058
  6. ARIMIDEX [Concomitant]
     Active Substance: ANASTROZOLE
     Route: 048

REACTIONS (7)
  - Joint dislocation [Unknown]
  - Throat irritation [Unknown]
  - Arthralgia [Unknown]
  - Back pain [Unknown]
  - White blood cell count decreased [Unknown]
  - Gynaecomastia [Unknown]
  - Dysgeusia [Unknown]

NARRATIVE: CASE EVENT DATE: 2013
